FAERS Safety Report 17973277 (Version 2)
Quarter: 2020Q4

REPORT INFORMATION
  Report Type: Spontaneous
  Country: US (occurrence: US)
  Receive Date: 20200702
  Receipt Date: 20201027
  Transmission Date: 20210113
  Serious: No
  Sender: FDA-Public Use
  Company Number: US-BRISTOL-MYERS SQUIBB COMPANY-BMS-2020-052178

PATIENT
  Age: 71 Year
  Sex: Male
  Weight: 101 kg

DRUGS (1)
  1. YERVOY [Suspect]
     Active Substance: IPILIMUMAB
     Indication: TRANSITIONAL CELL CARCINOMA
     Dosage: 1000 MILLIGRAM, Q3MO
     Route: 042
     Dates: start: 2014

REACTIONS (4)
  - Pruritus [Recovering/Resolving]
  - Intentional product use issue [Unknown]
  - Platelet count decreased [Unknown]
  - Fatigue [Recovering/Resolving]

NARRATIVE: CASE EVENT DATE: 20200512
